FAERS Safety Report 7903112-0 (Version None)
Quarter: 2011Q4

REPORT INFORMATION
  Report Type: 
  Country: None (occurrence: None)
  Receive Date: 20111109
  Receipt Date: 20111104
  Transmission Date: 20120403
  Serious: No
  Sender: FDA-Public Use
  Company Number: US-TEVA-308289USA

PATIENT
  Sex: Female

DRUGS (2)
  1. PLAN B ONE-STEP [Suspect]
     Indication: POST COITAL CONTRACEPTION
     Dosage: 1.5 MILLIGRAM;
     Route: 048
     Dates: start: 20111020, end: 20111020
  2. ORTHO TRI-CYCLEN [Concomitant]
     Indication: CONTRACEPTION
     Dates: start: 20100101

REACTIONS (1)
  - MENSTRUATION IRREGULAR [None]
